FAERS Safety Report 22932150 (Version 2)
Quarter: 2023Q4

REPORT INFORMATION
  Report Type: Report from Study
  Country: US (occurrence: US)
  Receive Date: 20230912
  Receipt Date: 20231121
  Transmission Date: 20240109
  Serious: Yes (Hospitalization)
  Sender: FDA-Public Use
  Company Number: US-JNJFOC-20230902076

PATIENT
  Age: 70 Year
  Sex: Female
  Weight: 78 kg

DRUGS (3)
  1. DARATUMUMAB [Suspect]
     Active Substance: DARATUMUMAB
     Indication: Plasma cell myeloma
     Route: 058
     Dates: start: 20230713, end: 20230725
  2. ELRANATAMAB [Suspect]
     Active Substance: ELRANATAMAB
     Indication: Plasma cell myeloma
     Route: 065
     Dates: start: 20230707, end: 20230725
  3. DIAZEPAM [Concomitant]
     Active Substance: DIAZEPAM
     Route: 065

REACTIONS (1)
  - Immune effector cell-associated neurotoxicity syndrome [Recovered/Resolved with Sequelae]

NARRATIVE: CASE EVENT DATE: 20230725
